FAERS Safety Report 10056184 (Version 31)
Quarter: 2020Q1

REPORT INFORMATION
  Report Type: Report from Study
  Country: CA (occurrence: CA)
  Receive Date: 20140403
  Receipt Date: 20200225
  Transmission Date: 20200409
  Serious: Yes (Hospitalization, Other)
  Sender: FDA-Public Use
  Company Number: CA-ROCHE-1283628

PATIENT
  Age: 79 Year
  Sex: Female
  Weight: 45 kg

DRUGS (6)
  1. ACTEMRA [Suspect]
     Active Substance: TOCILIZUMAB
     Indication: RHEUMATOID ARTHRITIS
     Route: 042
     Dates: start: 20130828
  2. ACTEMRA [Suspect]
     Active Substance: TOCILIZUMAB
     Route: 042
     Dates: start: 20140114
  3. SULINDAC. [Concomitant]
     Active Substance: SULINDAC
  4. ACTEMRA [Suspect]
     Active Substance: TOCILIZUMAB
     Route: 042
     Dates: start: 20160127
  5. ACTEMRA [Suspect]
     Active Substance: TOCILIZUMAB
     Route: 042
  6. ACTEMRA [Suspect]
     Active Substance: TOCILIZUMAB
     Route: 042

REACTIONS (16)
  - Body temperature decreased [Unknown]
  - Blood pressure increased [Unknown]
  - Weight decreased [Recovered/Resolved]
  - Lower limb fracture [Unknown]
  - Blood pressure increased [Unknown]
  - Fall [Unknown]
  - Pain in extremity [Not Recovered/Not Resolved]
  - Blood pressure diastolic abnormal [Unknown]
  - Hypotension [Unknown]
  - Incision site impaired healing [Unknown]
  - Heart rate decreased [Unknown]
  - Blood pressure systolic abnormal [Unknown]
  - Pain in extremity [Unknown]
  - Infusion related reaction [Unknown]
  - Heart rate decreased [Unknown]
  - Blood pressure diastolic decreased [Unknown]

NARRATIVE: CASE EVENT DATE: 20130927
